FAERS Safety Report 10096516 (Version 2)
Quarter: 2014Q2

REPORT INFORMATION
  Report Type: Spontaneous
  Country: US (occurrence: US)
  Receive Date: 20140422
  Receipt Date: 20140422
  Transmission Date: 20141212
  Serious: No
  Sender: FDA-Public Use
  Company Number: US-GILEAD-2012-0066077

PATIENT
  Sex: Male

DRUGS (3)
  1. LETAIRIS [Suspect]
     Indication: PULMONARY ARTERIAL HYPERTENSION
     Dosage: 5 MG, QD
     Route: 048
     Dates: start: 20121114
  2. EPOPROSTENOL [Concomitant]
  3. REVATIO [Concomitant]

REACTIONS (5)
  - Pain [Unknown]
  - Gout [Unknown]
  - Pain in extremity [Unknown]
  - Headache [Unknown]
  - Peripheral swelling [Unknown]
